FAERS Safety Report 18483656 (Version 10)
Quarter: 2025Q1

REPORT INFORMATION
  Report Type: Report from Study
  Country: US (occurrence: None)
  Receive Date: 20201109
  Receipt Date: 20250313
  Transmission Date: 20250408
  Serious: No
  Sender: INCYTE
  Company Number: US-INCYTE CORPORATION-2020IN009597

PATIENT
  Age: 68 Year

DRUGS (21)
  1. JAKAFI [Suspect]
     Active Substance: RUXOLITINIB
     Indication: Myelofibrosis
     Dosage: 20 MILLIGRAM, BID
  2. JAKAFI [Suspect]
     Active Substance: RUXOLITINIB
     Dosage: 20 MILLIGRAM, BID
  3. JAKAFI [Suspect]
     Active Substance: RUXOLITINIB
  4. JAKAFI [Suspect]
     Active Substance: RUXOLITINIB
     Dosage: UNK, QD
  5. JAKAFI [Suspect]
     Active Substance: RUXOLITINIB
     Dosage: 20 MILLIGRAM, QD
  6. JAKAFI [Suspect]
     Active Substance: RUXOLITINIB
  7. JAKAFI [Suspect]
     Active Substance: RUXOLITINIB
  8. JAKAFI [Suspect]
     Active Substance: RUXOLITINIB
  9. JAKAFI [Suspect]
     Active Substance: RUXOLITINIB
  10. JAKAFI [Suspect]
     Active Substance: RUXOLITINIB
  11. JAKAFI [Suspect]
     Active Substance: RUXOLITINIB
     Dosage: 20 MILLIGRAM, BID
  12. JAKAFI [Suspect]
     Active Substance: RUXOLITINIB
  13. JAKAFI [Suspect]
     Active Substance: RUXOLITINIB
  14. FLAXSEED [Concomitant]
     Active Substance: FLAX SEED
     Indication: Product used for unknown indication
     Route: 065
  15. OMEGA-3 FATTY ACIDS [Concomitant]
     Active Substance: OMEGA-3 FATTY ACIDS
     Indication: Product used for unknown indication
     Route: 065
  16. FISH OIL [Concomitant]
     Active Substance: FISH OIL
     Indication: Product used for unknown indication
     Route: 065
  17. VITAMINS NOS [Concomitant]
     Active Substance: VITAMINS
     Indication: Product used for unknown indication
     Route: 065
  18. ATORVASTATIN [Concomitant]
     Active Substance: ATORVASTATIN
     Indication: Product used for unknown indication
     Route: 065
  19. AMLODIPINE BESYLATE\ATORVASTATIN CALCIUM [Concomitant]
     Active Substance: AMLODIPINE BESYLATE\ATORVASTATIN CALCIUM
     Indication: Product used for unknown indication
     Route: 065
  20. LEVOTHYROXINE [Concomitant]
     Active Substance: LEVOTHYROXINE
     Indication: Product used for unknown indication
     Route: 065
  21. LEVOTHYROXINE [Concomitant]
     Active Substance: LEVOTHYROXINE
     Route: 065

REACTIONS (21)
  - White blood cell count decreased [Unknown]
  - Dry mouth [Not Recovered/Not Resolved]
  - Blood cholesterol abnormal [Unknown]
  - High density lipoprotein abnormal [Unknown]
  - Platelet count increased [Not Recovered/Not Resolved]
  - Skin irritation [Not Recovered/Not Resolved]
  - Heart rate increased [Not Recovered/Not Resolved]
  - Product availability issue [Unknown]
  - Palpitations [Not Recovered/Not Resolved]
  - Pruritus [Not Recovered/Not Resolved]
  - Osteoporosis [Unknown]
  - Full blood count decreased [Not Recovered/Not Resolved]
  - Central obesity [Unknown]
  - Blood cholesterol decreased [Unknown]
  - Platelet count decreased [Unknown]
  - Hypercholesterolaemia [Not Recovered/Not Resolved]
  - Anaemia [Not Recovered/Not Resolved]
  - Dyspnoea [Not Recovered/Not Resolved]
  - Muscle spasms [Not Recovered/Not Resolved]
  - Hypertension [Unknown]
  - Low density lipoprotein increased [Unknown]
